FAERS Safety Report 9767633 (Version 2)
Quarter: 2014Q1

REPORT INFORMATION
  Report Type: Spontaneous
  Country: GB (occurrence: GB)
  Receive Date: 20131217
  Receipt Date: 20140228
  Transmission Date: 20141002
  Serious: Yes (Disabling, Other)
  Sender: FDA-Public Use
  Company Number: PHFR2013GB007192

PATIENT
  Age: 88 Year
  Sex: Female

DRUGS (6)
  1. CLOZARIL [Suspect]
     Dosage: 6.25 MG, UNK
     Route: 048
     Dates: start: 2011
  2. CLOZARIL [Suspect]
     Dosage: UNK
     Route: 048
     Dates: start: 20120910, end: 20131219
  3. OMEPRAZOLE [Concomitant]
     Indication: GASTROOESOPHAGEAL REFLUX DISEASE
     Dosage: 20 MG, UNK
     Route: 048
  4. ASPIRIN [Concomitant]
     Indication: MYOCARDIAL ISCHAEMIA
     Dosage: 75 MG, UNK
     Route: 048
  5. ATORVASTATIN [Concomitant]
     Indication: MYOCARDIAL ISCHAEMIA
     Dosage: 40 MG, UNK
     Route: 048
  6. RIVASTIGMINE [Concomitant]
     Indication: DEMENTIA ALZHEIMER^S TYPE
     Dosage: 6 MG, UNK
     Route: 048

REACTIONS (6)
  - Sedation [Not Recovered/Not Resolved]
  - Somnolence [Unknown]
  - Neutrophil count increased [Unknown]
  - Malaise [Unknown]
  - White blood cell count increased [Recovered/Resolved]
  - Haemoglobin decreased [Unknown]
